FAERS Safety Report 22644287 (Version 2)
Quarter: 2023Q2

REPORT INFORMATION
  Report Type: Report from Study
  Country: US (occurrence: US)
  Receive Date: 20230627
  Receipt Date: 20230629
  Transmission Date: 20230722
  Serious: No
  Sender: FDA-Public Use
  Company Number: US-002147023-NVSC2023US146041

PATIENT
  Sex: Female
  Weight: 76.2 kg

DRUGS (1)
  1. HYDROCORTISONE [Suspect]
     Active Substance: HYDROCORTISONE
     Indication: Psoriasis
     Dosage: UNK
     Route: 065

REACTIONS (3)
  - Seborrhoeic dermatitis [Unknown]
  - Hepatitis B surface antibody positive [Unknown]
  - Drug ineffective [Unknown]
